FAERS Safety Report 4471890-1 (Version None)
Quarter: 2004Q4

REPORT INFORMATION
  Report Type: 
  Country: None (occurrence: None)
  Receive Date: 20041006
  Receipt Date: 20040920
  Transmission Date: 20050328
  Serious: Yes (Hospitalization)
  Sender: FDA-Public Use
  Company Number: T04-USA-01945-01

PATIENT
  Age: 80 Year
  Sex: Female
  Weight: 44.4525 kg

DRUGS (12)
  1. MEMANTINE (OPEN LABEL, PHASE D) (MEMANTINE) [Suspect]
     Indication: DEMENTIA ALZHEIMER'S TYPE
     Dosage: 20 MG QD PO
     Route: 048
     Dates: start: 20040318, end: 20040428
  2. MEMANTINE (OPEN LABEL, PHASE D) (MEMANTINE) [Suspect]
     Indication: DEMENTIA ALZHEIMER'S TYPE
     Dosage: 10 MG QD PO
     Route: 048
     Dates: start: 20040429
  3. MEMANTINE (OPEN LABEL, PHASE C) (MEMANTINE) [Suspect]
     Indication: DEMENTIA ALZHEIMER'S TYPE
     Dosage: 20 MG QD PO
     Route: 048
     Dates: start: 20030327, end: 20040318
  4. MEMANTINE (OPEN LABEL, PHASE AB) (MEMANTINE) [Suspect]
     Indication: DEMENTIA ALZHEIMER'S TYPE
     Dosage: 20 MG QD PO
     Route: 048
  5. DIGOXIN [Concomitant]
  6. WARFARIN SODIUM [Concomitant]
  7. CONJUGATED ESTROGENS (ESTROGENS CONJUGATED) [Concomitant]
  8. ATORVASTATIN CALCIUM [Concomitant]
  9. TOLTERODINE [Concomitant]
  10. ACETAMINOPHEN [Concomitant]
  11. SEPTRA DS [Concomitant]
  12. AMANTADINE HCL [Concomitant]

REACTIONS (11)
  - ATRIAL FIBRILLATION [None]
  - BALANCE DISORDER [None]
  - CEREBRAL ATROPHY [None]
  - CEREBRAL ISCHAEMIA [None]
  - DIZZINESS [None]
  - GAIT DISTURBANCE [None]
  - PAIN IN EXTREMITY [None]
  - RESPIRATORY RATE INCREASED [None]
  - SYNCOPE [None]
  - VENTRICULAR HYPERTROPHY [None]
  - VERTIGO [None]
